FAERS Safety Report 10963430 (Version 1)
Quarter: 2015Q1

REPORT INFORMATION
  Report Type: Spontaneous
  Country: US (occurrence: None)
  Receive Date: 20150326
  Receipt Date: 20150326
  Transmission Date: 20150721
  Serious: Yes (Other)
  Sender: FDA-Public Use
  Company Number: 2015-000529

PATIENT

DRUGS (1)
  1. FEMTRACE [Suspect]
     Active Substance: ESTRADIOL ACETATE

REACTIONS (1)
  - Drug-induced liver injury [None]
